FAERS Safety Report 25847578 (Version 1)
Quarter: 2025Q3

REPORT INFORMATION
  Report Type: Spontaneous
  Country: US (occurrence: None)
  Receive Date: 20250924
  Receipt Date: 20250924
  Transmission Date: 20251021
  Serious: Yes (Hospitalization, Disabling)
  Sender: FDA-CTU
  Company Number: None

PATIENT
  Age: 52 Year
  Sex: Female
  Weight: 63 kg

DRUGS (13)
  1. QELBREE [Suspect]
     Active Substance: VILOXAZINE HYDROCHLORIDE
     Indication: Attention deficit hyperactivity disorder
     Dosage: OTHER QUANTITY : 1 CAPSULE(S);?FREQUENCY : AT BEDTIME;?
     Route: 048
     Dates: start: 20250907, end: 20250912
  2. LEVOTHYROXINE [Concomitant]
     Active Substance: LEVOTHYROXINE
  3. LIOTHYRONINE [Concomitant]
     Active Substance: LIOTHYRONINE
  4. Duovee (HRT) [Concomitant]
  5. Guamfazine (ADHD) [Concomitant]
  6. fluoxetine (Anxiety) [Concomitant]
  7. VITAMIN C [Concomitant]
     Active Substance: ASCORBIC ACID
  8. VITAMIN B [Concomitant]
     Active Substance: VITAMIN B
  9. VITAMIN D NOS [Concomitant]
     Active Substance: CHOLECALCIFEROL\ERGOCALCIFEROL
  10. MAGNESIUM [Concomitant]
     Active Substance: MAGNESIUM
  11. LYSINE [Concomitant]
     Active Substance: LYSINE
  12. Supplement for IBS - Intestinal Movement Formula [Concomitant]
  13. CREATINE [Concomitant]
     Active Substance: CREATINE

REACTIONS (8)
  - Insomnia [None]
  - Headache [None]
  - Migraine [None]
  - Vomiting [None]
  - Therapy interrupted [None]
  - Photosensitivity reaction [None]
  - Dehydration [None]
  - Hypersomnia [None]

NARRATIVE: CASE EVENT DATE: 20250914
